FAERS Safety Report 12314553 (Version 3)
Quarter: 2016Q3

REPORT INFORMATION
  Report Type: Spontaneous
  Country: US (occurrence: US)
  Receive Date: 20160428
  Receipt Date: 20160711
  Transmission Date: 20161109
  Serious: No
  Sender: FDA-Public Use
  Company Number: US-GLAXOSMITHKLINE-US2016GSK050959

PATIENT
  Age: 65 Year
  Sex: Male

DRUGS (4)
  1. INCRUSE ELLIPTA [Suspect]
     Active Substance: UMECLIDINIUM BROMIDE
     Indication: PRODUCT USED FOR UNKNOWN INDICATION
     Dosage: UNK, U
  2. ADVAIR DISKUS [Suspect]
     Active Substance: FLUTICASONE PROPIONATE\SALMETEROL XINAFOATE
     Indication: BRONCHIAL DISORDER
     Dosage: 1 PUFF(S), BID
     Route: 055
     Dates: start: 2011
  3. ADVAIR DISKUS [Suspect]
     Active Substance: FLUTICASONE PROPIONATE\SALMETEROL XINAFOATE
     Indication: EMPHYSEMA
  4. VENTOLIN HFA [Concomitant]
     Active Substance: ALBUTEROL SULFATE

REACTIONS (5)
  - Asthenia [Recovering/Resolving]
  - Oxygen saturation decreased [Unknown]
  - Drug dispensing error [Unknown]
  - Constipation [Recovering/Resolving]
  - International normalised ratio increased [Unknown]

NARRATIVE: CASE EVENT DATE: 201604
